FAERS Safety Report 8025090-9 (Version None)
Quarter: 2012Q1

REPORT INFORMATION
  Report Type: 
  Country: None (occurrence: None)
  Receive Date: 20120105
  Receipt Date: 20120102
  Transmission Date: 20120608
  Serious: Yes (Hospitalization)
  Sender: FDA-Public Use
  Company Number: DE-ROCHE-1018866

PATIENT
  Age: 28 Year
  Sex: Female
  Weight: 52 kg

DRUGS (3)
  1. NIFEDIPINE [Concomitant]
     Indication: PRODUCT USED FOR UNKNOWN INDICATION
     Dates: start: 19980101, end: 20111208
  2. RAMIPRIL [Concomitant]
     Indication: PRODUCT USED FOR UNKNOWN INDICATION
     Dates: start: 19980101, end: 20111208
  3. VEMURAFENIB [Suspect]
     Indication: MALIGNANT MELANOMA
     Route: 048

REACTIONS (1)
  - EPILEPSY [None]
